FAERS Safety Report 21389517 (Version 1)
Quarter: 2022Q3

REPORT INFORMATION
  Report Type: Spontaneous
  Country: US (occurrence: US)
  Receive Date: 20220929
  Receipt Date: 20220929
  Transmission Date: 20221027
  Serious: No
  Sender: FDA-Public Use
  Company Number: US-TEVA-2022-US-2073185

PATIENT
  Age: 78 Year
  Sex: Female

DRUGS (1)
  1. BUDESONIDE [Suspect]
     Active Substance: BUDESONIDE
     Indication: Product used for unknown indication
     Dosage: 0.5/2 MG/ML, 2-3 TIMES A DAY
     Route: 065
     Dates: start: 202208, end: 20220826

REACTIONS (3)
  - Stomatitis [Recovered/Resolved]
  - Stomatitis [Recovered/Resolved]
  - Dry mouth [Not Recovered/Not Resolved]

NARRATIVE: CASE EVENT DATE: 20220801
